FAERS Safety Report 5166766-0 (Version None)
Quarter: 2006Q4

REPORT INFORMATION
  Report Type: 
  Country: None (occurrence: None)
  Receive Date: 20061207
  Receipt Date: 20061011
  Transmission Date: 20070319
  Serious: Yes (Life-Threatening, Hospitalization)
  Sender: FDA-Public Use
  Company Number: SE-ELI_LILLY_AND_COMPANY-SE200610002075

PATIENT
  Age: 58 Year
  Sex: Male

DRUGS (7)
  1. HERACILLIN [Concomitant]
     Indication: INFECTED SKIN ULCER
     Dates: end: 20060901
  2. DALACIN [Concomitant]
     Indication: INFECTED SKIN ULCER
     Dates: end: 20060901
  3. ZOLOFT [Concomitant]
     Indication: DEPRESSION
     Dosage: 100 MG, DAILY (1/D)
     Dates: end: 20060917
  4. SELOKEN [Concomitant]
     Indication: HYPERTONIA
     Dosage: 100 MG, DAILY (1/D)
     Dates: end: 20061001
  5. AMLODIPINE [Concomitant]
     Indication: HYPERTONIA
     Dosage: 10 MG, DAILY (1/D)
     Dates: end: 20061001
  6. SIMVASTATIN [Concomitant]
     Indication: HYPERLIPIDAEMIA
     Dosage: 40 MG, DAILY (1/D)
     Dates: end: 20061001
  7. CYMBALTA [Suspect]
     Indication: DEPRESSION
     Dosage: 60 MG, DAILY (1/D)
     Route: 048
     Dates: start: 20060914, end: 20061001

REACTIONS (3)
  - DIARRHOEA [None]
  - ENTEROCOLITIS BACTERIAL [None]
  - SYNCOPE [None]
